FAERS Safety Report 4773847-X (Version None)
Quarter: 2005Q3

REPORT INFORMATION
  Report Type: 
  Country: None (occurrence: None)
  Receive Date: 20050920
  Receipt Date: 20050915
  Transmission Date: 20060218
  Serious: Yes (Hospitalization)
  Sender: FDA-Public Use
  Company Number: US-MERCK-0509USA02334

PATIENT
  Age: 57 Year
  Sex: Female

DRUGS (5)
  1. VIOXX [Suspect]
     Indication: ARTHRITIS
     Route: 048
     Dates: start: 19960101, end: 20040101
  2. XANAX [Concomitant]
     Route: 065
  3. SOMA [Concomitant]
     Route: 065
  4. LORTAB [Concomitant]
     Route: 065
  5. DARVOCET-N 100 [Concomitant]
     Route: 065

REACTIONS (5)
  - ADVERSE EVENT [None]
  - AMNESIA [None]
  - CEREBROVASCULAR ACCIDENT [None]
  - HEMIPARESIS [None]
  - PNEUMONIA [None]
